FAERS Safety Report 14993723 (Version 2)
Quarter: 2018Q2

REPORT INFORMATION
  Report Type: Spontaneous
  Country: FR (occurrence: FR)
  Receive Date: 20180611
  Receipt Date: 20180619
  Transmission Date: 20180711
  Serious: Yes (Hospitalization)
  Sender: FDA-Public Use
  Company Number: FR-TEVA-2018-FR-904709

PATIENT
  Age: 20 Year
  Sex: Male
  Weight: 90 kg

DRUGS (6)
  1. NEFOPAM (CHLORHYDRATE DE) [Concomitant]
     Active Substance: NEFOPAM HYDROCHLORIDE
     Route: 065
  2. TIBERAL 1 G, INJECTION SOLUTION FOR INFUSION [Concomitant]
     Route: 065
  3. LOVENOX [Concomitant]
     Active Substance: ENOXAPARIN SODIUM
     Route: 065
  4. AMOXICILLIN. [Suspect]
     Active Substance: AMOXICILLIN
     Indication: ANTIBIOTIC THERAPY
     Dosage: 16 GRAM DAILY;
     Route: 042
     Dates: start: 20180122, end: 20180214
  5. KEPPRA [Concomitant]
     Active Substance: LEVETIRACETAM
     Route: 065
  6. PARACETAMOL [Concomitant]
     Active Substance: ACETAMINOPHEN
     Route: 065

REACTIONS (2)
  - Renal tubular disorder [Not Recovered/Not Resolved]
  - Crystal nephropathy [Recovered/Resolved]

NARRATIVE: CASE EVENT DATE: 20180214
